FAERS Safety Report 4847026-1 (Version None)
Quarter: 2005Q4

REPORT INFORMATION
  Report Type: 
  Country: None (occurrence: None)
  Receive Date: 20051207
  Receipt Date: 20051125
  Transmission Date: 20060501
  Serious: Yes (Hospitalization)
  Sender: FDA-Public Use
  Company Number: FR-JNJFOC-20051005694

PATIENT
  Sex: Female

DRUGS (13)
  1. TOPALGIC [Suspect]
     Indication: ARTHRALGIA
     Route: 048
  2. APROVEL [Concomitant]
     Indication: HYPERTENSION
     Route: 048
  3. SLEEPING TABLET [Concomitant]
     Indication: SLEEP DISORDER
     Route: 065
  4. NOCTAMIDE [Concomitant]
     Indication: SLEEP DISORDER
     Route: 048
  5. AREDIA [Concomitant]
     Route: 042
  6. LIPANTHYL [Concomitant]
     Indication: CONSTIPATION
     Route: 048
  7. FORLAX [Concomitant]
     Indication: CONSTIPATION
     Route: 048
  8. PROPOFOL [Concomitant]
     Route: 065
  9. PROPOFOL [Concomitant]
     Route: 065
  10. PROPOFOL [Concomitant]
     Route: 065
  11. PROPOFOL [Concomitant]
     Route: 065
  12. PROPOFOL [Concomitant]
     Route: 065
  13. NUCTALON [Concomitant]
     Indication: SLEEP DISORDER
     Route: 048

REACTIONS (5)
  - CONFUSIONAL STATE [None]
  - DISORIENTATION [None]
  - FALL [None]
  - HYPONATRAEMIA [None]
  - INAPPROPRIATE ANTIDIURETIC HORMONE SECRETION [None]
